FAERS Safety Report 24790177 (Version 1)
Quarter: 2024Q4

REPORT INFORMATION
  Report Type: Spontaneous
  Country: ES (occurrence: ES)
  Receive Date: 20241230
  Receipt Date: 20241230
  Transmission Date: 20250115
  Serious: Yes (Hospitalization)
  Sender: B BRAUN
  Company Number: ES-B.Braun Medical Inc.-2168035

PATIENT
  Age: 43 Year
  Sex: Female

DRUGS (1)
  1. ACETAMINOPHEN [Suspect]
     Active Substance: ACETAMINOPHEN
     Indication: Abdominal pain
     Dates: start: 20241117

REACTIONS (3)
  - Dyspnoea [Recovered/Resolved]
  - Salivary hyposecretion [Recovered/Resolved]
  - Wheezing [Recovered/Resolved]
